FAERS Safety Report 5289005-9 (Version None)
Quarter: 2007Q2

REPORT INFORMATION
  Report Type: 
  Country: None (occurrence: None)
  Receive Date: 20070405
  Receipt Date: 20070327
  Transmission Date: 20071010
  Serious: Yes (Death, Hospitalization)
  Sender: FDA-Public Use
  Company Number: NL-PFIZER INC-2007020715

PATIENT
  Sex: Male

DRUGS (10)
  1. SU-011,248 [Suspect]
     Indication: GASTROINTESTINAL STROMAL TUMOUR
     Route: 048
     Dates: start: 20051229, end: 20061114
  2. PANTOZOL [Concomitant]
  3. METOPROLOL SUCCINATE [Concomitant]
  4. FUROSEMIDE [Concomitant]
  5. PROSCAR [Concomitant]
  6. PARACETAMOL [Concomitant]
  7. EMOVATE [Concomitant]
  8. LEGENDAL [Concomitant]
  9. OXYNORM [Concomitant]
  10. ADALAT [Concomitant]

REACTIONS (3)
  - ABDOMINAL PAIN [None]
  - DISEASE PROGRESSION [None]
  - GASTROINTESTINAL STROMAL TUMOUR [None]
